FAERS Safety Report 24162119 (Version 1)
Quarter: 2024Q3

REPORT INFORMATION
  Report Type: Spontaneous
  Country: US (occurrence: None)
  Receive Date: 20240731
  Receipt Date: 20240731
  Transmission Date: 20241017
  Serious: Yes (Other)
  Sender: Public
  Company Number: None

PATIENT
  Age: 75 Year
  Sex: Male
  Weight: 135 kg

DRUGS (11)
  1. EYLEA HD [Suspect]
     Active Substance: AFLIBERCEPT
     Indication: Macular degeneration
     Dosage: OTHER QUANTITY : 1 INJECTION(S);?OTHER FREQUENCY : EVERY 3 MONTHS;?
     Route: 047
     Dates: start: 20240625, end: 20240625
  2. ALLOPURINOL [Concomitant]
     Active Substance: ALLOPURINOL
  3. PIOGLITAZONE [Concomitant]
     Active Substance: PIOGLITAZONE
  4. ROSUVASTATIN [Concomitant]
     Active Substance: ROSUVASTATIN\ROSUVASTATIN CALCIUM
  5. NEXIUM [Concomitant]
  6. PROZAC [Concomitant]
     Active Substance: FLUOXETINE HYDROCHLORIDE
  7. DEVICE [Concomitant]
     Active Substance: DEVICE
  8. VITAMINS [Concomitant]
     Active Substance: VITAMINS
  9. METHYLCOBALAMIN [Concomitant]
     Active Substance: METHYLCOBALAMIN
  10. VITAMIN D3 [Concomitant]
     Active Substance: CHOLECALCIFEROL
  11. POTASSIUM [Concomitant]
     Active Substance: POTASSIUM

REACTIONS (11)
  - Visual impairment [None]
  - Panic reaction [None]
  - Fear [None]
  - Ocular procedural complication [None]
  - Post procedural complication [None]
  - Eye swelling [None]
  - Eye irritation [None]
  - Balance disorder [None]
  - Hypoaesthesia [None]
  - Hypoacusis [None]
  - Sensory disturbance [None]

NARRATIVE: CASE EVENT DATE: 20240625
